FAERS Safety Report 23997974 (Version 1)
Quarter: 2024Q2

REPORT INFORMATION
  Report Type: Spontaneous
  Country: US (occurrence: US)
  Receive Date: 20240621
  Receipt Date: 20240621
  Transmission Date: 20240716
  Serious: No
  Sender: FDA-Public Use
  Company Number: US-REVANCE THERAPEUTICS INC.-US-REV-2024-000205

PATIENT

DRUGS (3)
  1. DAXIBOTULINUMTOXIN A-LANM [Suspect]
     Active Substance: DAXIBOTULINUMTOXIN A-LANM
     Indication: Skin wrinkling
     Dosage: 142 UNITS (GLABELLA 36 U, FRONTALIS 26 U, CROW^S FEET 56 U (28 UNITS EACH SIDE), LIP FLIP 6 U, DAO 1
     Route: 065
     Dates: start: 20240315
  2. DAXIBOTULINUMTOXIN A-LANM [Suspect]
     Active Substance: DAXIBOTULINUMTOXIN A-LANM
     Dosage: 133 UNITS (FRONTALIS 22 U, GLABELLA 40 U, BUNNY 6 U, CROWS 48 U, LIP FLIP 5 U, DAO 12 U)
     Dates: start: 202310
  3. DAXIBOTULINUMTOXIN A-LANM [Suspect]
     Active Substance: DAXIBOTULINUMTOXIN A-LANM
     Dosage: 133 U
     Route: 065
     Dates: start: 2024

REACTIONS (3)
  - No adverse event [Unknown]
  - Underdose [Unknown]
  - Off label use [Unknown]

NARRATIVE: CASE EVENT DATE: 20240315
